FAERS Safety Report 4985560-4 (Version None)
Quarter: 2006Q2

REPORT INFORMATION
  Report Type: 
  Country: None (occurrence: None)
  Receive Date: 20060428
  Receipt Date: 20050314
  Transmission Date: 20061013
  Serious: No
  Sender: FDA-Public Use
  Company Number: US-GLAXOSMITHKLINE-A0549617A

PATIENT
  Age: 77 Year
  Sex: Male

DRUGS (8)
  1. SEREVENT [Suspect]
     Indication: ASTHMA
     Dosage: 1PUFF TWICE PER DAY
     Route: 055
     Dates: start: 20050228, end: 20050313
  2. SINGULAIR [Concomitant]
  3. EFFEXOR [Concomitant]
  4. ATENOLOL [Concomitant]
  5. ACTOS [Concomitant]
  6. POTASSIUM [Concomitant]
  7. FLOMAX [Concomitant]
  8. ZOCOR [Concomitant]

REACTIONS (2)
  - COUGH [None]
  - MICTURITION DISORDER [None]
